FAERS Safety Report 20139822 (Version 1)
Quarter: 2021Q4

REPORT INFORMATION
  Report Type: Report from Study
  Country: CA (occurrence: CA)
  Receive Date: 20211202
  Receipt Date: 20211202
  Transmission Date: 20220304
  Serious: Yes (Other)
  Sender: FDA-Public Use
  Company Number: CA-BIOGEN-2021BI01072464

PATIENT
  Age: 23 Year
  Sex: Female

DRUGS (5)
  1. TECFIDERA [Suspect]
     Active Substance: DIMETHYL FUMARATE
     Indication: Multiple sclerosis
     Route: 048
     Dates: start: 20211002, end: 20211015
  2. TECFIDERA [Suspect]
     Active Substance: DIMETHYL FUMARATE
     Dosage: 120 MILLIGRAM PO AM
     Route: 048
     Dates: start: 20211016, end: 20211022
  3. TECFIDERA [Suspect]
     Active Substance: DIMETHYL FUMARATE
     Dosage: 240 MILLIGRAMS PO PM
     Route: 048
     Dates: start: 20211016, end: 20211022
  4. TECFIDERA [Suspect]
     Active Substance: DIMETHYL FUMARATE
     Dosage: MAINTENANCE DOSE
     Route: 048
     Dates: start: 20211023
  5. DECADRON [Suspect]
     Active Substance: DEXAMETHASONE
     Indication: IIIrd nerve paralysis
     Route: 065

REACTIONS (13)
  - Psychotic disorder [Not Recovered/Not Resolved]
  - IIIrd nerve paralysis [Not Recovered/Not Resolved]
  - Malaise [Not Recovered/Not Resolved]
  - Mental disorder [Not Recovered/Not Resolved]
  - Oral candidiasis [Not Recovered/Not Resolved]
  - Vaginal infection [Not Recovered/Not Resolved]
  - Vulvovaginal pruritus [Not Recovered/Not Resolved]
  - Confusional state [Not Recovered/Not Resolved]
  - Mania [Not Recovered/Not Resolved]
  - Apathy [Not Recovered/Not Resolved]
  - Multiple sclerosis relapse [Not Recovered/Not Resolved]
  - Flushing [Not Recovered/Not Resolved]
  - Underdose [Unknown]

NARRATIVE: CASE EVENT DATE: 20211023
